FAERS Safety Report 9754657 (Version 2)
Quarter: 2014Q1

REPORT INFORMATION
  Report Type: Spontaneous
  Country: US (occurrence: US)
  Receive Date: 20131213
  Receipt Date: 20140124
  Transmission Date: 20141002
  Serious: Yes (Other)
  Sender: FDA-Public Use
  Company Number: US-PFIZER INC-2013356321

PATIENT
  Age: 65 Year
  Sex: Female
  Weight: 68.03 kg

DRUGS (6)
  1. LYRICA [Suspect]
     Indication: NEURALGIA
     Dosage: 300 MG, 2X/DAY
     Route: 048
     Dates: start: 200909
  2. LYRICA [Suspect]
     Indication: NERVE INJURY
     Dosage: 300 MG, 2X/DAY
     Route: 048
  3. TRIAMTERENE [Concomitant]
     Dosage: UNK
  4. HYDROCHLOROTHIAZIDE/TRIAMTERENE [Concomitant]
     Dosage: UNK
  5. KLOR-CON [Concomitant]
     Dosage: UNK
  6. NADOLOL [Concomitant]
     Dosage: UNK

REACTIONS (4)
  - Off label use [Unknown]
  - Varices oesophageal [Unknown]
  - Pain [Unknown]
  - Blood test abnormal [Unknown]
